FAERS Safety Report 7046613-2 (Version None)
Quarter: 2010Q4

REPORT INFORMATION
  Report Type: 
  Country: None (occurrence: None)
  Receive Date: 20101015
  Receipt Date: 20101005
  Transmission Date: 20110411
  Serious: No
  Sender: FDA-Public Use
  Company Number: US-BIOGENIDEC-2010BI034960

PATIENT
  Sex: Female

DRUGS (1)
  1. TYSABRI [Suspect]
     Indication: MULTIPLE SCLEROSIS
     Route: 042
     Dates: start: 20090625

REACTIONS (4)
  - AMNESIA [None]
  - DISTURBANCE IN ATTENTION [None]
  - FATIGUE [None]
  - HYPERSOMNIA [None]
